FAERS Safety Report 9897225 (Version 1)
Quarter: 2014Q1

REPORT INFORMATION
  Report Type: Spontaneous
  Country: FR (occurrence: FR)
  Receive Date: 20140214
  Receipt Date: 20140214
  Transmission Date: 20141002
  Serious: Yes (Hospitalization)
  Sender: FDA-Public Use
  Company Number: FR-009507513-1402FRA001857

PATIENT
  Age: 42 Year
  Sex: Female

DRUGS (5)
  1. TEMODAL [Suspect]
     Indication: OLIGODENDROGLIOMA
     Dosage: 400 MG, QD
     Route: 048
     Dates: start: 20131203, end: 20131207
  2. URBANYL [Concomitant]
  3. LOXEN [Concomitant]
  4. KEPPRA [Concomitant]
  5. TEGRETOL [Concomitant]

REACTIONS (4)
  - Febrile bone marrow aplasia [Recovering/Resolving]
  - Haematuria [Recovered/Resolved]
  - Gingival bleeding [Recovered/Resolved]
  - Mucosal inflammation [Recovered/Resolved]
